FAERS Safety Report 9938616 (Version 3)
Quarter: 2014Q2

REPORT INFORMATION
  Report Type: Spontaneous
  Country: US (occurrence: US)
  Receive Date: 20140303
  Receipt Date: 20140509
  Transmission Date: 20141212
  Serious: Yes (Hospitalization)
  Sender: FDA-Public Use
  Company Number: US-BAYER-2014-029176

PATIENT
  Age: 28 Year
  Sex: Female
  Weight: 54.42 kg

DRUGS (6)
  1. MIRENA [Suspect]
     Indication: CONTRACEPTION
     Dosage: 20 MCG/24HR, CONT
     Route: 015
     Dates: start: 20090428, end: 201306
  2. PHENERGAN [Concomitant]
  3. PRENATE [DIFLUPREDNATE] [Concomitant]
  4. LEXAPRO [Concomitant]
  5. NEXIUM [Concomitant]
  6. MACROBID [Concomitant]

REACTIONS (7)
  - Uterine perforation [None]
  - Scar [None]
  - Dyspareunia [None]
  - Abdominal pain upper [None]
  - Device difficult to use [None]
  - Emotional distress [None]
  - Injury [None]
